FAERS Safety Report 7432963-4 (Version None)
Quarter: 2011Q2

REPORT INFORMATION
  Report Type: 
  Country: None (occurrence: None)
  Receive Date: 20110422
  Receipt Date: 20110413
  Transmission Date: 20111010
  Serious: No
  Sender: FDA-Public Use
  Company Number: US-PFIZER INC-2011078374

PATIENT
  Sex: Female
  Weight: 54 kg

DRUGS (3)
  1. ALAVERT [Suspect]
     Indication: SEASONAL ALLERGY
     Dosage: 10 MG, DAILY
     Route: 048
     Dates: start: 20110407
  2. PRILOSEC [Concomitant]
     Indication: GASTROOESOPHAGEAL REFLUX DISEASE
     Dosage: UNK
  3. ALAVERT [Suspect]
     Dosage: 10 MG, 1X/DAY
     Route: 048
     Dates: start: 20110407

REACTIONS (2)
  - FATIGUE [None]
  - TABLET PHYSICAL ISSUE [None]
